FAERS Safety Report 5169324-7 (Version None)
Quarter: 2006Q4

REPORT INFORMATION
  Report Type: 
  Country: None (occurrence: None)
  Receive Date: 20061201
  Receipt Date: 20061122
  Transmission Date: 20070319
  Serious: Yes (Hospitalization)
  Sender: FDA-Public Use
  Company Number: 2006SP007092

PATIENT
  Age: 52 Year
  Sex: Female

DRUGS (4)
  1. TEMODAL [Suspect]
     Indication: GLIOBLASTOMA MULTIFORME
     Dosage: 150 MG/M2; PO; 200 MG/M2; PO
     Route: 048
     Dates: start: 20060823, end: 20061025
  2. TEMODAL [Suspect]
     Indication: GLIOBLASTOMA MULTIFORME
     Dosage: 150 MG/M2; PO; 200 MG/M2; PO
     Route: 048
     Dates: start: 20061121
  3. EUTHYROX (CON.) [Concomitant]
  4. ORFIRIL (CON.) [Concomitant]

REACTIONS (1)
  - APPENDICITIS [None]
